FAERS Safety Report 5028633-2 (Version None)
Quarter: 2006Q2

REPORT INFORMATION
  Report Type: 
  Country: None (occurrence: None)
  Receive Date: 20060619
  Receipt Date: 20060608
  Transmission Date: 20061013
  Serious: Yes (Hospitalization)
  Sender: FDA-Public Use
  Company Number: PHBS2006IT08699

PATIENT
  Age: 70 Year
  Sex: Female

DRUGS (1)
  1. AREDIA [Suspect]
     Indication: PLASMACYTOMA
     Dosage: 60 MG, QMO
     Route: 042
     Dates: start: 19980101, end: 20031231

REACTIONS (2)
  - OSTEITIS [None]
  - OSTEONECROSIS [None]
